FAERS Safety Report 4442666-6 (Version None)
Quarter: 2004Q3

REPORT INFORMATION
  Report Type: 
  Country: None (occurrence: None)
  Receive Date: 20040903
  Receipt Date: 20040608
  Transmission Date: 20050211
  Serious: Yes (Other)
  Sender: FDA-Public Use
  Company Number: 2004UW11884

PATIENT
  Age: 74 Year
  Sex: Female
  Weight: 72.5755 kg

DRUGS (7)
  1. CRESTOR [Suspect]
     Indication: BLOOD CHOLESTEROL INCREASED
     Dosage: 10 MG
  2. ACCUPRIL [Concomitant]
  3. SYNTHROID [Concomitant]
  4. EVISTA [Concomitant]
  5. ASPIRIN [Concomitant]
  6. ACTONEL [Concomitant]
  7. MIRAPEX [Concomitant]

REACTIONS (1)
  - BLOOD PRESSURE DECREASED [None]
